FAERS Safety Report 4903652-2 (Version None)
Quarter: 2006Q1

REPORT INFORMATION
  Report Type: 
  Country: None (occurrence: None)
  Receive Date: 20060202
  Receipt Date: 20060120
  Transmission Date: 20060701
  Serious: Yes (Other)
  Sender: FDA-Public Use
  Company Number: 2006009344

PATIENT
  Age: 4 Year
  Sex: Female
  Weight: 19.5 kg

DRUGS (1)
  1. ZYRTEC [Suspect]
     Indication: RHINITIS ALLERGIC
     Dosage: 5 MG (1 D), ORAL
     Route: 048

REACTIONS (9)
  - DYSKINESIA [None]
  - EYE MOVEMENT DISORDER [None]
  - FATIGUE [None]
  - GRUNTING [None]
  - NASAL FLARING [None]
  - NASAL TURBINATE ABNORMALITY [None]
  - OEDEMA [None]
  - TIC [None]
  - TORTICOLLIS [None]
